FAERS Safety Report 10133731 (Version 3)
Quarter: 2015Q1

REPORT INFORMATION
  Report Type: Report from Study
  Country: JP (occurrence: JP)
  Receive Date: 20140428
  Receipt Date: 20150327
  Transmission Date: 20150720
  Serious: Yes (Death)
  Sender: FDA-Public Use
  Company Number: JP-SA-THYM-1004092

PATIENT
  Age: 67 Year
  Sex: Male
  Weight: 54 kg

DRUGS (17)
  1. SOL-MELCORT [Concomitant]
     Active Substance: METHYLPREDNISOLONE SODIUM SUCCINATE
     Indication: PROPHYLAXIS
     Dosage: UNK
     Dates: start: 20121115, end: 20130123
  2. PROGRAF [Concomitant]
     Active Substance: TACROLIMUS\TACROLIMUS ANHYDROUS
     Indication: PROPHYLAXIS
     Dosage: UNK
     Route: 065
     Dates: start: 20121113, end: 20130119
  3. CHLOR-TRIMETON [Concomitant]
     Active Substance: CHLORPHENIRAMINE MALEATE
     Indication: PREMEDICATION
     Dosage: UNK
     Route: 065
     Dates: start: 20121101, end: 20121201
  4. INSULIN HUMAN [Concomitant]
     Active Substance: INSULIN HUMAN
     Indication: DIABETES MELLITUS
     Dosage: UNK
     Route: 065
     Dates: end: 20130210
  5. CARBENIN [Concomitant]
     Active Substance: BETAMIPRON\PANIPENEM
     Indication: PROPHYLAXIS
     Dosage: UNK
     Route: 041
     Dates: start: 20130209, end: 20130210
  6. PREDONINE [Concomitant]
     Active Substance: PREDNISOLONE\PREDNISOLONE ACETATE\PREDNISOLONE SODIUM SUCCINATE
     Indication: GRAFT VERSUS HOST DISEASE
     Dosage: WATER SOLUBLE
     Route: 065
     Dates: start: 20121126, end: 20121213
  7. PREDONINE [Concomitant]
     Active Substance: PREDNISOLONE\PREDNISOLONE ACETATE\PREDNISOLONE SODIUM SUCCINATE
     Indication: GRAFT VERSUS HOST DISEASE
     Dosage: WATER SOLUBLE
     Route: 065
     Dates: start: 20130124, end: 20130207
  8. CHLOR-TRIMETON [Concomitant]
     Active Substance: CHLORPHENIRAMINE MALEATE
     Indication: PROPHYLAXIS
     Dosage: UNK
     Route: 065
     Dates: start: 20121101, end: 20121201
  9. CHLOR-TRIMETON [Concomitant]
     Active Substance: CHLORPHENIRAMINE MALEATE
     Indication: PROPHYLAXIS
     Dosage: UNK
     Route: 065
     Dates: start: 20130107, end: 20130209
  10. PREDONINE [Concomitant]
     Active Substance: PREDNISOLONE\PREDNISOLONE ACETATE\PREDNISOLONE SODIUM SUCCINATE
     Indication: PROPHYLAXIS
     Dosage: WATER SOLUBLE
     Route: 065
     Dates: start: 20130124, end: 20130207
  11. THYRADIN S [Concomitant]
     Active Substance: LEVOTHYROXINE SODIUM
     Indication: THYROIDITIS CHRONIC
     Dosage: UNK
     Route: 065
     Dates: start: 20130119, end: 20130205
  12. CHLOR-TRIMETON [Concomitant]
     Active Substance: CHLORPHENIRAMINE MALEATE
     Indication: PREMEDICATION
     Dosage: UNK
     Route: 065
     Dates: start: 20130107, end: 20130209
  13. AMBISOME [Concomitant]
     Active Substance: AMPHOTERICIN B
     Indication: BRONCHOPULMONARY ASPERGILLOSIS
     Dosage: UNK
     Route: 042
     Dates: start: 20121103, end: 20121211
  14. PREDONINE [Concomitant]
     Active Substance: PREDNISOLONE\PREDNISOLONE ACETATE\PREDNISOLONE SODIUM SUCCINATE
     Indication: PROPHYLAXIS
     Dosage: WATER SOLUBLE
     Route: 065
     Dates: start: 20121126, end: 20121213
  15. ACICLOVIR [Concomitant]
     Active Substance: ACYCLOVIR
     Indication: PROPHYLAXIS
     Dosage: UNK
     Route: 065
     Dates: start: 20121114, end: 20121217
  16. THYMOGLOBULINE [Suspect]
     Active Substance: LAPINE T-LYMPHOCYTE IMMUNE GLOBULIN
     Indication: BONE MARROW CONDITIONING REGIMEN
     Dosage: 125 MG, ONCE
     Route: 065
     Dates: start: 20121113, end: 20121113
  17. FINIBAX [Concomitant]
     Active Substance: DORIPENEM MONOHYDRATE
     Indication: PROPHYLAXIS
     Dosage: UNK
     Route: 042
     Dates: start: 20121112, end: 20121123

REACTIONS (12)
  - Acute myeloid leukaemia recurrent [Fatal]
  - Fungal infection [Not Recovered/Not Resolved]
  - Pulmonary mass [Not Recovered/Not Resolved]
  - Haemorrhoids [Not Recovered/Not Resolved]
  - Thyroiditis chronic [Not Recovered/Not Resolved]
  - Diarrhoea [Recovered/Resolved]
  - Staphylococcal sepsis [Not Recovered/Not Resolved]
  - Pleural effusion [Not Recovered/Not Resolved]
  - Delirium [Not Recovered/Not Resolved]
  - Urinary retention [Not Recovered/Not Resolved]
  - Cytomegalovirus infection [Not Recovered/Not Resolved]
  - Pneumonia [Not Recovered/Not Resolved]

NARRATIVE: CASE EVENT DATE: 20121114
